FAERS Safety Report 18547112 (Version 1)
Quarter: 2020Q4

REPORT INFORMATION
  Report Type: Spontaneous
  Country: FR (occurrence: FR)
  Receive Date: 20201125
  Receipt Date: 20201125
  Transmission Date: 20210114
  Serious: Yes (Other)
  Sender: FDA-Public Use
  Company Number: FR-PFIZER INC-2020460153

PATIENT
  Age: 18 Year
  Sex: Female

DRUGS (3)
  1. XANAX [Suspect]
     Active Substance: ALPRAZOLAM
     Dosage: 5.75 MG, SINGLE (23 TABLETS)
     Route: 048
     Dates: start: 20171224, end: 20171224
  2. LYSANXIA [Suspect]
     Active Substance: PRAZEPAM
     Dosage: 280 MG, SINGLE (28 TABLETS)
     Route: 048
     Dates: start: 20171224, end: 20171224
  3. EFFEXOR LP [Suspect]
     Active Substance: VENLAFAXINE HYDROCHLORIDE
     Dosage: 3000 MG, SINGLE (2 BLISTERS OF 20 CAPSULES)
     Route: 048
     Dates: start: 20171224, end: 20171224

REACTIONS (4)
  - Intentional overdose [Unknown]
  - Suicide attempt [Unknown]
  - Toxicity to various agents [Recovered/Resolved]
  - Somnolence [Recovered/Resolved]

NARRATIVE: CASE EVENT DATE: 20171224
